FAERS Safety Report 12408452 (Version 2)
Quarter: 2016Q2

REPORT INFORMATION
  Report Type: Spontaneous
  Country: US (occurrence: US)
  Receive Date: 20160526
  Receipt Date: 20160603
  Transmission Date: 20160815
  Serious: Yes (Other)
  Sender: FDA-Public Use
  Company Number: US-APOTEX-2016AP008606

PATIENT
  Age: 53 Year
  Sex: Male

DRUGS (12)
  1. MIDAZOLAM HYDROCHLORIDE INJECTION [Suspect]
     Active Substance: MIDAZOLAM HYDROCHLORIDE
     Dosage: REMAINED STABLE AT 8 MG/H
     Route: 041
  2. MORPHINE [Concomitant]
     Active Substance: MORPHINE
     Indication: ANALGESIC THERAPY
     Route: 065
  3. NOREPINEPHRINE [Concomitant]
     Active Substance: NOREPINEPHRINE\NOREPINEPHRINE BITARTRATE
     Indication: PRODUCT USED FOR UNKNOWN INDICATION
     Dosage: INITIATED AND TITRATED TO 35 MICROG/MIN.
     Route: 065
  4. MIDAZOLAM HYDROCHLORIDE INJECTION [Suspect]
     Active Substance: MIDAZOLAM HYDROCHLORIDE
     Dosage: REACHED A MAXIMUM RATE OF 16 MG/H.
     Route: 041
  5. OSELTAMIVIR [Concomitant]
     Active Substance: OSELTAMIVIR
     Indication: H1N1 INFLUENZA
     Dosage: 75 MG, BID
     Route: 065
  6. DEXMEDETOMIDINE. [Suspect]
     Active Substance: DEXMEDETOMIDINE
     Indication: SEDATIVE THERAPY
     Dosage: 0.3 MICROG/KG/H
     Route: 041
  7. KETAMINE [Suspect]
     Active Substance: KETAMINE
     Indication: SEDATIVE THERAPY
     Dosage: 1 MICROG/KG/MIN
     Route: 041
  8. KETAMINE [Suspect]
     Active Substance: KETAMINE
     Dosage: REMAINED STABLE AT 8 TO 10 MICROG/KG/MIN
     Route: 041
  9. DEXMEDETOMIDINE. [Suspect]
     Active Substance: DEXMEDETOMIDINE
     Dosage: TITRATED TO A MAXIMUM RATE OF 1 MICROG/KG/H.
     Route: 041
  10. KETAMINE [Suspect]
     Active Substance: KETAMINE
     Dosage: 10 MICROG/KG/MIN
     Route: 041
  11. MIDAZOLAM HYDROCHLORIDE INJECTION [Suspect]
     Active Substance: MIDAZOLAM HYDROCHLORIDE
     Indication: SEDATIVE THERAPY
     Dosage: REACHED A RATE OF 14MG/H ON DAY 10
     Route: 041
  12. MIDAZOLAM HYDROCHLORIDE INJECTION [Suspect]
     Active Substance: MIDAZOLAM HYDROCHLORIDE
     Dosage: 8 HOURS LATER,DECREASED TO A RATE OF 12 MG/H
     Route: 041

REACTIONS (2)
  - Subdural haematoma [Unknown]
  - Agitation [Unknown]
